FAERS Safety Report 8113227-2 (Version None)
Quarter: 2012Q1

REPORT INFORMATION
  Report Type: 
  Country: None (occurrence: None)
  Receive Date: 20120203
  Receipt Date: 20120201
  Transmission Date: 20120608
  Serious: Yes (Other)
  Sender: FDA-Public Use
  Company Number: US-PFIZER INC-2011290464

PATIENT
  Sex: Female

DRUGS (1)
  1. CHANTIX [Suspect]
     Dosage: UNK
     Route: 048

REACTIONS (6)
  - PALPITATIONS [None]
  - ABNORMAL DREAMS [None]
  - FEELING ABNORMAL [None]
  - SUICIDAL IDEATION [None]
  - AGITATION [None]
  - INSOMNIA [None]
